FAERS Safety Report 12853808 (Version 1)
Quarter: 2016Q4

REPORT INFORMATION
  Report Type: Spontaneous
  Country: AU (occurrence: AU)
  Receive Date: 20161017
  Receipt Date: 20161017
  Transmission Date: 20170207
  Serious: Yes (Other)
  Sender: FDA-Public Use
  Company Number: AU-CIPLA LTD.-2016CA19354

PATIENT

DRUGS (3)
  1. KETOCONAZOLE. [Suspect]
     Active Substance: KETOCONAZOLE
     Dosage: UNK
     Route: 065
  2. RITONAVIR. [Suspect]
     Active Substance: RITONAVIR
     Indication: ANTIRETROVIRAL THERAPY
     Dosage: 100 MG, DAILY
     Route: 065
  3. FLUTICASONE [Interacting]
     Active Substance: FLUTICASONE\FLUTICASONE PROPIONATE
     Dosage: 1000 ?G, DAILY

REACTIONS (4)
  - Drug interaction [Unknown]
  - Osteoporosis [Unknown]
  - Cushing^s syndrome [Not Recovered/Not Resolved]
  - Adrenal suppression [Not Recovered/Not Resolved]
